FAERS Safety Report 20804424 (Version 1)
Quarter: 2022Q2

REPORT INFORMATION
  Report Type: Spontaneous
  Country: US (occurrence: None)
  Receive Date: 20220509
  Receipt Date: 20220509
  Transmission Date: 20220721
  Serious: Yes (Other)
  Sender: FDA-Public Use
  Company Number: US-FARMAPROD-202204-0752

PATIENT
  Age: 67 Year
  Sex: Female

DRUGS (2)
  1. OXERVATE [Suspect]
     Active Substance: CENEGERMIN-BKBJ
     Indication: Neurotrophic keratopathy
     Route: 047
     Dates: start: 20220326, end: 20220421
  2. SYSTANE (HYPROMELLOSE 2910 (4000 MPA.S)) [Concomitant]
     Active Substance: HYPROMELLOSE 2910 (4000 MPA.S)
     Indication: Keratitis
     Dosage: MORE THAN ONE YEAR AGO

REACTIONS (6)
  - Conjunctival haemorrhage [Recovered/Resolved]
  - Vision blurred [Recovering/Resolving]
  - Eye irritation [Unknown]
  - Ocular hyperaemia [Unknown]
  - Condition aggravated [Unknown]
  - Treatment noncompliance [Unknown]

NARRATIVE: CASE EVENT DATE: 20220421
